FAERS Safety Report 7980208-9 (Version None)
Quarter: 2011Q4

REPORT INFORMATION
  Report Type: 
  Country: None (occurrence: None)
  Receive Date: 20111214
  Receipt Date: 20111205
  Transmission Date: 20120403
  Serious: Yes (Hospitalization)
  Sender: FDA-Public Use
  Company Number: US-CELGENEUS-163-21880-11120590

PATIENT
  Sex: Female
  Weight: 55.842 kg

DRUGS (9)
  1. EVISTA [Concomitant]
     Route: 065
  2. REVLIMID [Suspect]
     Indication: MYELODYSPLASTIC SYNDROME
     Dosage: 5 MILLIGRAM
     Route: 048
     Dates: start: 20081201
  3. M.V.I. [Concomitant]
     Route: 065
  4. CALCIUM [Concomitant]
     Route: 065
  5. PROCRIT [Concomitant]
     Route: 065
  6. VITAMIN B-12 [Concomitant]
     Route: 065
  7. ASCORBIC ACID [Concomitant]
     Route: 065
  8. HYDROCHLOROTHIAZIDE [Concomitant]
     Route: 065
  9. POTASSIUM CHLORIDE [Concomitant]
     Route: 065

REACTIONS (2)
  - COMPRESSION FRACTURE [None]
  - FALL [None]
